FAERS Safety Report 10153681 (Version 1)
Quarter: 2014Q2

REPORT INFORMATION
  Report Type: Spontaneous
  Country: IT (occurrence: IT)
  Receive Date: 20140506
  Receipt Date: 20140506
  Transmission Date: 20141212
  Serious: Yes (Hospitalization)
  Sender: FDA-Public Use
  Company Number: PHHY2014IT052550

PATIENT
  Age: 69 Year
  Sex: Female

DRUGS (1)
  1. METFORMINE HCL [Suspect]
     Indication: TYPE 2 DIABETES MELLITUS
     Dosage: 1 DF, QD
     Route: 048
     Dates: start: 20090120, end: 20140120

REACTIONS (3)
  - Anuria [Recovering/Resolving]
  - Sopor [Recovering/Resolving]
  - Lactic acidosis [Recovering/Resolving]
